FAERS Safety Report 21729994 (Version 1)
Quarter: 2022Q4

REPORT INFORMATION
  Report Type: Spontaneous
  Country: US (occurrence: US)
  Receive Date: 20221214
  Receipt Date: 20221214
  Transmission Date: 20230113
  Serious: No
  Sender: FDA-Public Use
  Company Number: US-TEVA-2022-US-2834382

PATIENT
  Age: 47 Year
  Sex: Male

DRUGS (1)
  1. AJOVY [Suspect]
     Active Substance: FREMANEZUMAB-VFRM
     Indication: Product used for unknown indication
     Dosage: 225 MG / 1.5 ML
     Route: 065

REACTIONS (5)
  - Injection site pain [Unknown]
  - Accidental exposure to product [Unknown]
  - Drug dose omission by device [Unknown]
  - Device leakage [Unknown]
  - Device malfunction [Unknown]

NARRATIVE: CASE EVENT DATE: 20221123
